FAERS Safety Report 11673065 (Version 4)
Quarter: 2015Q4

REPORT INFORMATION
  Report Type: Spontaneous
  Country: US (occurrence: US)
  Receive Date: 20151028
  Receipt Date: 20151116
  Transmission Date: 20160304
  Serious: Yes (Hospitalization)
  Sender: FDA-Public Use
  Company Number: CHPA2015US012386

PATIENT
  Age: 76 Year
  Sex: Male

DRUGS (6)
  1. METFORMIN HCL TABLETS [Suspect]
     Active Substance: METFORMIN HYDROCHLORIDE
     Indication: DIABETES MELLITUS
     Dosage: 500 MG, BID
     Route: 065
  2. VOLTAREN [Suspect]
     Active Substance: DICLOFENAC SODIUM
     Indication: ARTHRITIS
     Dosage: 1 TSP, PRN
     Route: 061
     Dates: start: 2014
  3. LOSARTAN. [Suspect]
     Active Substance: LOSARTAN
     Indication: BLOOD PRESSURE MEASUREMENT
     Route: 048
  4. SERTRALINE [Suspect]
     Active Substance: SERTRALINE HYDROCHLORIDE
     Indication: DEPRESSION
     Dosage: ? PILL, QD
     Route: 065
     Dates: start: 20151012, end: 20151014
  5. FLU [Concomitant]
     Active Substance: INFLUENZA VIRUS VACCINE
     Indication: INFLUENZA IMMUNISATION
     Dosage: UNK
     Route: 065
     Dates: start: 20151001
  6. BIOFREEZE                          /01638601/ [Concomitant]
     Indication: ARTHRITIS
     Route: 065

REACTIONS (16)
  - Rash erythematous [Recovering/Resolving]
  - Wrong technique in product usage process [Unknown]
  - Influenza like illness [Recovering/Resolving]
  - Blood creatine increased [Recovering/Resolving]
  - Malaise [Recovering/Resolving]
  - Blister [Recovering/Resolving]
  - Abdominal discomfort [Recovering/Resolving]
  - Decreased appetite [Recovering/Resolving]
  - Drug administered at inappropriate site [Unknown]
  - Therapeutic response unexpected [Unknown]
  - Blood creatine decreased [Recovering/Resolving]
  - Depression [Unknown]
  - Bacterial infection [Unknown]
  - Asthenia [Recovering/Resolving]
  - Somnolence [Recovering/Resolving]
  - Inappropriate schedule of drug administration [Unknown]

NARRATIVE: CASE EVENT DATE: 2014
